FAERS Safety Report 18571408 (Version 2)
Quarter: 2021Q2

REPORT INFORMATION
  Report Type: Report from Study
  Country: US (occurrence: US)
  Receive Date: 20201202
  Receipt Date: 20210412
  Transmission Date: 20210717
  Serious: Yes (Other)
  Sender: FDA-Public Use
  Company Number: US-INCYTE CORPORATION-2020IN011535

PATIENT

DRUGS (1)
  1. JAKAFI [Suspect]
     Active Substance: RUXOLITINIB
     Indication: MYELOFIBROSIS
     Dosage: 15 MILLIGRAM, BID
     Route: 048
     Dates: start: 20200930

REACTIONS (4)
  - Constipation [Unknown]
  - Dizziness postural [Unknown]
  - Chest pain [Unknown]
  - Haemoglobin abnormal [Recovering/Resolving]

NARRATIVE: CASE EVENT DATE: 20201120
